FAERS Safety Report 24041484 (Version 2)
Quarter: 2024Q3

REPORT INFORMATION
  Report Type: Spontaneous
  Country: US (occurrence: US)
  Receive Date: 20240702
  Receipt Date: 20240910
  Transmission Date: 20241017
  Serious: No
  Sender: PFIZER
  Company Number: US-PFIZER INC-PV202300012810

PATIENT
  Age: 37 Year
  Sex: Female

DRUGS (2)
  1. CIBINQO [Suspect]
     Active Substance: ABROCITINIB
     Indication: Dermatitis atopic
     Dosage: UNK
     Dates: start: 20221001
  2. CIBINQO [Suspect]
     Active Substance: ABROCITINIB
     Indication: Eczema
     Dosage: 2 TABLETS, ONCE A DAY
     Route: 048
     Dates: start: 202211

REACTIONS (6)
  - Oral herpes [Unknown]
  - Condition aggravated [Unknown]
  - Pruritus [Unknown]
  - Acne [Unknown]
  - Therapeutic product effect incomplete [Unknown]
  - Off label use [Unknown]
